FAERS Safety Report 13568748 (Version 2)
Quarter: 2017Q2

REPORT INFORMATION
  Report Type: Spontaneous
  Country: VE (occurrence: VE)
  Receive Date: 20170522
  Receipt Date: 20170626
  Transmission Date: 20170830
  Serious: Yes (Hospitalization)
  Sender: FDA-Public Use
  Company Number: VE-TEVA-767866ISR

PATIENT
  Age: 54 Year
  Sex: Female
  Weight: 54 kg

DRUGS (5)
  1. CURAM [Suspect]
     Active Substance: AMOXICILLIN\CLAVULANATE POTASSIUM
     Indication: HELICOBACTER GASTRITIS
     Dosage: 2000 MICROGRAM DAILY; AMOXACILILLIN 875 MG AND  CLAVULANIC ACID 125 MG
     Route: 048
     Dates: start: 20170503, end: 20170504
  2. BINOCLAR [Suspect]
     Active Substance: CLARITHROMYCIN
     Indication: HELICOBACTER GASTRITIS
     Dosage: 1000 MILLIGRAM DAILY; CLARITHROMYCIN 250 MG/5 ML
     Route: 048
     Dates: start: 20170503, end: 20170504
  3. CURAM [Suspect]
     Active Substance: AMOXICILLIN\CLAVULANATE POTASSIUM
     Dosage: 1000 MICROGRAM DAILY; AMOXACILILLIN 875 MG AND  CLAVULANIC ACID 125 MG
     Route: 048
     Dates: start: 20170505, end: 20170505
  4. BINOCLAR [Suspect]
     Active Substance: CLARITHROMYCIN
     Dosage: 500 MILLIGRAM DAILY; CLARITHROMYCIN 250 MG/5 ML
     Route: 048
     Dates: start: 20170505, end: 20170505
  5. LANSOPRAZOLE. [Suspect]
     Active Substance: LANSOPRAZOLE
     Indication: HELICOBACTER GASTRITIS
     Dosage: DELAYED RELEASE CAPSULES
     Route: 048
     Dates: start: 20170427, end: 20170505

REACTIONS (1)
  - Psychotic disorder [Recovered/Resolved]

NARRATIVE: CASE EVENT DATE: 20170505
